FAERS Safety Report 10648376 (Version 2)
Quarter: 2014Q4

REPORT INFORMATION
  Report Type: Spontaneous
  Country: CA (occurrence: CA)
  Receive Date: 20141212
  Receipt Date: 20141212
  Transmission Date: 20150529
  Serious: Yes (Death, Hospitalization, Other)
  Sender: FDA-Public Use
  Company Number: PHHY2014CA158379

PATIENT
  Age: 59 Year
  Sex: Female

DRUGS (1)
  1. AFINITOR [Suspect]
     Active Substance: EVEROLIMUS
     Indication: BREAST CANCER METASTATIC
     Dosage: 10 MG, QD
     Route: 048
     Dates: start: 20140826, end: 20141129

REACTIONS (19)
  - Ejection fraction decreased [Unknown]
  - Generalised oedema [Unknown]
  - Renal failure [Unknown]
  - Blood copper increased [Unknown]
  - Blood lactate dehydrogenase increased [Unknown]
  - Haemoglobin decreased [Unknown]
  - Death [Fatal]
  - Multi-organ failure [Unknown]
  - Hepatic failure [Unknown]
  - Cystine urine present [Unknown]
  - International normalised ratio increased [Unknown]
  - Cardiogenic shock [Unknown]
  - Cardiac failure [Unknown]
  - Procalcitonin increased [Unknown]
  - General physical health deterioration [Unknown]
  - Aspartate aminotransferase increased [Unknown]
  - Blood creatinine increased [Unknown]
  - Blood bilirubin increased [Unknown]
  - Alanine aminotransferase increased [Unknown]

NARRATIVE: CASE EVENT DATE: 20141130
